FAERS Safety Report 11059009 (Version 1)
Quarter: 2015Q2

REPORT INFORMATION
  Report Type: Spontaneous
  Country: BR (occurrence: BR)
  Receive Date: 20150423
  Receipt Date: 20150423
  Transmission Date: 20150821
  Serious: Yes (Hospitalization, Other)
  Sender: FDA-Public Use
  Company Number: BR-PFIZER INC-2015132721

PATIENT
  Age: 87 Year
  Sex: Female
  Weight: 63 kg

DRUGS (8)
  1. METFORMIN [Concomitant]
     Active Substance: METFORMIN HYDROCHLORIDE
     Indication: DIABETES MELLITUS
     Dosage: 1 TABLET, EVERY 12 HOURS
     Dates: start: 2010
  2. LOSARTAN [Concomitant]
     Active Substance: LOSARTAN
     Indication: HYPERTENSION
     Dosage: 1 TABLET, 2X/DAY
     Dates: start: 2005
  3. VENALOT /00843801/ [Concomitant]
     Indication: NEPHRITIS
     Dosage: 1 TABLET, DAILY, 2X/DAY
     Dates: start: 1983
  4. ALPHAGAN P [Concomitant]
     Active Substance: BRIMONIDINE TARTRATE
     Dosage: 1 DROP IN BOTH EYES, 2X/DAY
     Dates: start: 2014
  5. GLIONIL [Concomitant]
     Indication: DIABETES MELLITUS
     Dosage: 1 TABLET, DAILY
     Dates: start: 2005
  6. XALATAN [Suspect]
     Active Substance: LATANOPROST
     Indication: INTRAOCULAR PRESSURE TEST
     Dosage: 1 DROP IN BOTH EYES, 1/XDAY
     Route: 047
     Dates: start: 201301
  7. SIMVASTATIN. [Concomitant]
     Active Substance: SIMVASTATIN
     Indication: BLOOD CHOLESTEROL INCREASED
     Dosage: 1 TABLET, DAILY
     Dates: start: 2012
  8. SYSTANE (HYPROMELLOSE 2910 (4000 MPA.S)) [Concomitant]
     Active Substance: HYPROMELLOSE 2910 (4000 MPA.S)
     Indication: EYE DISORDER
     Dosage: 1 DROP IN BOTH EYES, 3X/DAY
     Dates: start: 2012

REACTIONS (2)
  - Arrhythmia [Unknown]
  - Pulmonary oedema [Unknown]
